FAERS Safety Report 6188643-9 (Version None)
Quarter: 2009Q2

REPORT INFORMATION
  Report Type: 
  Country: None (occurrence: None)
  Receive Date: 20090511
  Receipt Date: 20090511
  Transmission Date: 20091009
  Serious: Yes (Other)
  Sender: FDA-Public Use
  Company Number: None

PATIENT
  Age: 54 Year
  Sex: Male
  Weight: 72.5755 kg

DRUGS (1)
  1. CIPRO [Suspect]
     Indication: URINARY TRACT INFECTION
     Dosage: 500MG 2 A DAY PO
     Route: 048
     Dates: start: 20080610, end: 20080620

REACTIONS (9)
  - ARTHRALGIA [None]
  - ASTHENIA [None]
  - BLINDNESS TRANSIENT [None]
  - BLINDNESS UNILATERAL [None]
  - DIZZINESS [None]
  - FATIGUE [None]
  - MYALGIA [None]
  - SLEEP APNOEA SYNDROME [None]
  - SUNBURN [None]
